FAERS Safety Report 7932509-8 (Version None)
Quarter: 2011Q4

REPORT INFORMATION
  Report Type: 
  Country: None (occurrence: None)
  Receive Date: 20111122
  Receipt Date: 20111115
  Transmission Date: 20120403
  Serious: No
  Sender: FDA-Public Use
  Company Number: US-BIOGENIDEC-2011BI043006

PATIENT
  Sex: Female

DRUGS (1)
  1. TYSABRI [Suspect]
     Indication: MULTIPLE SCLEROSIS
     Route: 042
     Dates: start: 20110909

REACTIONS (12)
  - SUICIDAL IDEATION [None]
  - STRESS [None]
  - AUTOPHOBIA [None]
  - THINKING ABNORMAL [None]
  - ABNORMAL BEHAVIOUR [None]
  - FEAR [None]
  - ARTHRALGIA [None]
  - EMOTIONAL DISORDER [None]
  - DEPRESSION [None]
  - MUSCULOSKELETAL PAIN [None]
  - ORAL NEOPLASM [None]
  - AFFECT LABILITY [None]
